FAERS Safety Report 19846162 (Version 1)
Quarter: 2021Q3

REPORT INFORMATION
  Report Type: Spontaneous
  Country: IT (occurrence: IT)
  Receive Date: 20210917
  Receipt Date: 20210917
  Transmission Date: 20211014
  Serious: Yes (Other)
  Sender: FDA-Public Use
  Company Number: IT-SA-2021SA296211

PATIENT
  Age: 40 Year
  Sex: Female

DRUGS (7)
  1. DENOSUMAB [Concomitant]
     Active Substance: DENOSUMAB
     Indication: TRIPLE POSITIVE BREAST CANCER
     Dosage: UNK, Q4W
     Dates: start: 2016
  2. DOCETAXEL. [Suspect]
     Active Substance: DOCETAXEL
     Dosage: UNK UNK, Q3W
     Dates: start: 201601, end: 2016
  3. PERTUZUMAB. [Suspect]
     Active Substance: PERTUZUMAB
     Dosage: UNK, Q3W
     Dates: start: 2016, end: 2016
  4. DOCETAXEL. [Suspect]
     Active Substance: DOCETAXEL
     Indication: TRIPLE POSITIVE BREAST CANCER
     Dosage: UNK, Q3W
     Dates: start: 201601, end: 2016
  5. TRASTUZUMAB. [Suspect]
     Active Substance: TRASTUZUMAB
     Indication: TRIPLE POSITIVE BREAST CANCER
     Dosage: UNK, Q3W
     Dates: start: 201601, end: 2016
  6. TRASTUZUMAB. [Suspect]
     Active Substance: TRASTUZUMAB
     Dosage: 3.6 MG/KG, Q3W
     Dates: start: 2016, end: 2016
  7. PERTUZUMAB. [Suspect]
     Active Substance: PERTUZUMAB
     Indication: TRIPLE POSITIVE BREAST CANCER
     Dosage: UNK, Q3W
     Dates: start: 201601, end: 2016

REACTIONS (4)
  - Hepatotoxicity [Unknown]
  - Hypertransaminasaemia [Unknown]
  - Therapy partial responder [Unknown]
  - Mucosal inflammation [Unknown]

NARRATIVE: CASE EVENT DATE: 2016
